FAERS Safety Report 13546054 (Version 2)
Quarter: 2017Q2

REPORT INFORMATION
  Report Type: Spontaneous
  Country: US (occurrence: US)
  Receive Date: 20170515
  Receipt Date: 20170608
  Transmission Date: 20170830
  Serious: Yes (Death, Life-Threatening, Hospitalization, Other)
  Sender: FDA-Public Use
  Company Number: PHEH2017US013509

PATIENT
  Age: 60 Year
  Sex: Male
  Weight: 77.2 kg

DRUGS (1)
  1. GILENYA [Suspect]
     Active Substance: FINGOLIMOD HYDROCHLORIDE
     Indication: MULTIPLE SCLEROSIS
     Dosage: 0.5 MG, QD
     Route: 048

REACTIONS (10)
  - Histoplasmosis disseminated [Fatal]
  - Pseudomonas infection [Unknown]
  - Sepsis [Unknown]
  - Renal failure [Unknown]
  - Pyrexia [Unknown]
  - Nodule [Unknown]
  - Dyspnoea [Unknown]
  - Multiple organ dysfunction syndrome [Fatal]
  - Clostridium difficile infection [Unknown]
  - Asthenia [Unknown]

NARRATIVE: CASE EVENT DATE: 20170420
